FAERS Safety Report 23936410 (Version 1)
Quarter: 2024Q2

REPORT INFORMATION
  Report Type: Spontaneous
  Country: RU (occurrence: None)
  Receive Date: 20240604
  Receipt Date: 20240604
  Transmission Date: 20240716
  Serious: Yes (Other)
  Sender: FDA-Public Use
  Company Number: 2024A121042

PATIENT
  Age: 67 Year
  Sex: Female
  Weight: 71 kg

DRUGS (27)
  1. SAPHNELO [Suspect]
     Active Substance: ANIFROLUMAB\ANIFROLUMAB-FNIA
     Indication: Systemic lupus erythematosus
     Route: 042
     Dates: start: 20221219, end: 20230219
  2. ACECLOFENAC [Concomitant]
     Active Substance: ACECLOFENAC
     Indication: Pain
  3. ASPIRIN [Concomitant]
     Active Substance: ASPIRIN
  4. CALCIUM CARBONATE [Concomitant]
     Active Substance: CALCIUM CARBONATE
  5. CAPTOPRIL [Concomitant]
     Active Substance: CAPTOPRIL
  6. CELECOXIB [Concomitant]
     Active Substance: CELECOXIB
  7. CHOLECALCIFEROL [Concomitant]
     Active Substance: CHOLECALCIFEROL
  8. DIPYRIDAMOLE [Concomitant]
     Active Substance: DIPYRIDAMOLE
  9. ETHYLMETHYLHYDROXYPYRIDINE SUCCINATE [Concomitant]
  10. HYDROXYCHLOROQUINE [Concomitant]
     Active Substance: HYDROXYCHLOROQUINE
  11. LERCANIDIPINE [Concomitant]
     Active Substance: LERCANIDIPINE
  12. MEASLES [Concomitant]
  13. MELOXICAM [Concomitant]
     Active Substance: MELOXICAM
  14. METHOTREXATE [Concomitant]
     Active Substance: METHOTREXATE
  15. MOXONIDINE [Concomitant]
     Active Substance: MOXONIDINE
  16. PANTOPRAZOLE [Concomitant]
     Active Substance: PANTOPRAZOLE
  17. PENTOXIFYLLINE [Concomitant]
     Active Substance: PENTOXIFYLLINE
  18. PERINDOPRIL [Concomitant]
     Active Substance: PERINDOPRIL
  19. RABEPRAZOLE [Concomitant]
     Active Substance: RABEPRAZOLE
  20. SALINE [Concomitant]
     Active Substance: SODIUM CHLORIDE
  21. THIOCTIC ACID [Concomitant]
     Active Substance: THIOCTIC ACID
  22. VITAMIN D [Concomitant]
     Active Substance: VITAMIN D NOS
  23. ZOLEDRONIC ACID [Concomitant]
     Active Substance: ZOLEDRONIC ACID
  24. FOLIC ACID [Concomitant]
     Active Substance: FOLIC ACID
  25. METHYLPREDNISOLONE [Concomitant]
     Active Substance: METHYLPREDNISOLONE
  26. VASCULAR [Concomitant]
  27. VITAMIN B1 [Concomitant]
     Active Substance: THIAMINE HYDROCHLORIDE

REACTIONS (5)
  - Peripheral swelling [Unknown]
  - Pneumonia [Unknown]
  - Systemic scleroderma [Unknown]
  - Coronavirus test [Unknown]
  - Skin disorder [Unknown]
